FAERS Safety Report 25028933 (Version 1)
Quarter: 2025Q1

REPORT INFORMATION
  Report Type: Spontaneous
  Country: US (occurrence: US)
  Receive Date: 20250302
  Receipt Date: 20250302
  Transmission Date: 20250409
  Serious: Yes (Other)
  Sender: NOVO NORDISK
  Company Number: US-NOVOPROD-1377488

PATIENT
  Sex: Male

DRUGS (2)
  1. OZEMPIC [Interacting]
     Active Substance: SEMAGLUTIDE
     Indication: Product used for unknown indication
     Route: 058
  2. LAMIVUDINE [Concomitant]
     Active Substance: LAMIVUDINE
     Indication: Hepatitis B

REACTIONS (2)
  - Hepatitis B [Recovered/Resolved]
  - Inhibitory drug interaction [Recovered/Resolved]
